FAERS Safety Report 5304677-8 (Version None)
Quarter: 2007Q2

REPORT INFORMATION
  Report Type: 
  Country: None (occurrence: None)
  Receive Date: 20070423
  Receipt Date: 20070417
  Transmission Date: 20071010
  Serious: Yes (Death)
  Sender: FDA-Public Use
  Company Number: HQWYE621518APR07

PATIENT

DRUGS (1)
  1. TYGACIL [Suspect]
     Dosage: NOT PROVIDED
     Route: 042

REACTIONS (1)
  - DEATH [None]
